FAERS Safety Report 18143777 (Version 1)
Quarter: 2020Q3

REPORT INFORMATION
  Report Type: Spontaneous
  Country: US (occurrence: US)
  Receive Date: 20200813
  Receipt Date: 20200813
  Transmission Date: 20201103
  Serious: No
  Sender: FDA-Public Use
  Company Number: US-AMGEN-USASP2020128784

PATIENT
  Sex: Male

DRUGS (1)
  1. REPATHA [Suspect]
     Active Substance: EVOLOCUMAB
     Indication: BLOOD CHOLESTEROL INCREASED
     Dosage: UNK
     Route: 065
     Dates: start: 20200714

REACTIONS (5)
  - Suspected COVID-19 [Unknown]
  - Periorbital swelling [Unknown]
  - Tinnitus [Unknown]
  - Ear infection [Unknown]
  - Erythema [Unknown]

NARRATIVE: CASE EVENT DATE: 2020
